FAERS Safety Report 25074377 (Version 1)
Quarter: 2025Q1

REPORT INFORMATION
  Report Type: Other
  Country: JP (occurrence: JP)
  Receive Date: 20250313
  Receipt Date: 20250313
  Transmission Date: 20250409
  Serious: Yes (Hospitalization, Other)
  Sender: ANI
  Company Number: JP-ANIPHARMA-015945

PATIENT
  Age: 69 Year
  Sex: Male

DRUGS (11)
  1. CYCLOPHOSPHAMIDE [Suspect]
     Active Substance: CYCLOPHOSPHAMIDE
     Indication: Follicular lymphoma stage IV
     Dates: start: 201810
  2. RITUXIMAB [Concomitant]
     Active Substance: RITUXIMAB
     Indication: Follicular lymphoma stage IV
     Dates: start: 2018
  3. DOXORUBICIN [Concomitant]
     Active Substance: DOXORUBICIN
     Indication: Follicular lymphoma stage IV
     Dates: start: 201810
  4. VINCRISTINE [Concomitant]
     Active Substance: VINCRISTINE
     Indication: Follicular lymphoma stage IV
     Dates: start: 201810
  5. PREDNISOLONE [Concomitant]
     Active Substance: PREDNISOLONE
     Indication: Follicular lymphoma stage IV
     Dates: start: 201810
  6. BENDAMUSTINE [Concomitant]
     Active Substance: BENDAMUSTINE
     Indication: Follicular lymphoma stage IV
     Dates: start: 2018
  7. OBINUTUZUMAB [Concomitant]
     Active Substance: OBINUTUZUMAB
     Indication: Follicular lymphoma stage III
     Dates: start: 202011
  8. BENDAMUSTINE [Concomitant]
     Active Substance: BENDAMUSTINE
     Indication: Follicular lymphoma stage III
     Dates: start: 202011
  9. RITUXIMAB [Concomitant]
     Active Substance: RITUXIMAB
     Indication: Follicular lymphoma stage III
     Dates: start: 201911
  10. BENDAMUSTINE [Concomitant]
     Active Substance: BENDAMUSTINE
     Indication: Follicular lymphoma stage III
     Dates: start: 201911
  11. RITUXIMAB [Concomitant]
     Active Substance: RITUXIMAB
     Indication: Follicular lymphoma stage IV
     Dates: start: 201810

REACTIONS (2)
  - Cytomegalovirus enteritis [Recovered/Resolved]
  - Primary adrenal insufficiency [Unknown]
